FAERS Safety Report 17542259 (Version 3)
Quarter: 2023Q4

REPORT INFORMATION
  Report Type: Spontaneous
  Country: US (occurrence: US)
  Receive Date: 20200313
  Receipt Date: 20231222
  Transmission Date: 20240110
  Serious: Yes (Hospitalization, Other)
  Sender: FDA-Public Use
  Company Number: US-JAZZ-2020-US-003490

PATIENT
  Age: 17 Year
  Sex: Female
  Weight: 82.2 kg

DRUGS (6)
  1. XYREM [Suspect]
     Active Substance: SODIUM OXYBATE
     Indication: Product used for unknown indication
     Dosage: UNKNOWN DOSE AND FREQUENCY
     Route: 048
  2. BUPROPION [Suspect]
     Active Substance: BUPROPION
     Indication: Product used for unknown indication
  3. ARIPIPRAZOLE [Suspect]
     Active Substance: ARIPIPRAZOLE
     Indication: Product used for unknown indication
  4. ACETAMINOPHEN\HYDROCODONE [Suspect]
     Active Substance: ACETAMINOPHEN\HYDROCODONE
     Indication: Product used for unknown indication
  5. SERTRALINE [Suspect]
     Active Substance: SERTRALINE HYDROCHLORIDE
     Indication: Product used for unknown indication
  6. DEXTROAMPHETAMINE [Suspect]
     Active Substance: DEXTROAMPHETAMINE
     Indication: Product used for unknown indication

REACTIONS (2)
  - Chest pain [Recovered/Resolved]
  - Suicide attempt [Unknown]
